FAERS Safety Report 7156487-7 (Version None)
Quarter: 2010Q4

REPORT INFORMATION
  Report Type: 
  Country: None (occurrence: None)
  Receive Date: 20101214
  Receipt Date: 20091117
  Transmission Date: 20110411
  Serious: No
  Sender: FDA-Public Use
  Company Number: US-ASTRAZENECA-2009SE26959

PATIENT
  Age: 947 Month
  Sex: Male
  Weight: 78 kg

DRUGS (15)
  1. CRESTOR [Suspect]
     Indication: HIGH DENSITY LIPOPROTEIN DECREASED
     Route: 048
     Dates: start: 20091001, end: 20091029
  2. COUMADIN [Concomitant]
  3. FOLIC ACID [Concomitant]
  4. FUROSEMIDE [Concomitant]
  5. ATENOLOL [Concomitant]
  6. SINGULAIR [Concomitant]
  7. ASPIRIN [Concomitant]
  8. OMEPRAZOLE [Concomitant]
  9. ISOSORBIDE DINITRATE [Concomitant]
  10. POTASSIUM CHLORIDE [Concomitant]
  11. MULTI-VITAMIN [Concomitant]
  12. ASCORBIC ACID [Concomitant]
  13. COLCHICINE [Concomitant]
  14. IRON [Concomitant]
  15. PRESERVISION LUTEIN [Concomitant]

REACTIONS (2)
  - MUSCLE RUPTURE [None]
  - MYALGIA [None]
